FAERS Safety Report 18155320 (Version 3)
Quarter: 2020Q3

REPORT INFORMATION
  Report Type: Spontaneous
  Country: DK (occurrence: DK)
  Receive Date: 20200817
  Receipt Date: 20200820
  Transmission Date: 20201103
  Serious: Yes (Death)
  Sender: FDA-Public Use
  Company Number: DK-B.I. PHARMACEUTICALS,INC./RIDGEFIELD-2020-BI-042107

PATIENT
  Age: 71 Year
  Sex: Male

DRUGS (2)
  1. OFEV [Suspect]
     Active Substance: NINTEDANIB
     Indication: INTERSTITIAL LUNG DISEASE
  2. OFEV [Suspect]
     Active Substance: NINTEDANIB
     Indication: RHEUMATOID ARTHRITIS
     Dosage: TOTAL DRUG DURATION 4?6 WEEKS
     Route: 065
     Dates: start: 201912, end: 202001

REACTIONS (3)
  - Interstitial lung disease [Fatal]
  - Alanine aminotransferase increased [Unknown]
  - Rheumatoid arthritis [Fatal]
